FAERS Safety Report 13104637 (Version 1)
Quarter: 2017Q1

REPORT INFORMATION
  Report Type: Report from Study
  Country: CN (occurrence: CN)
  Receive Date: 20170111
  Receipt Date: 20170111
  Transmission Date: 20170428
  Serious: Yes (Death)
  Sender: FDA-Public Use
  Company Number: CN-PFIZER INC-2017010951

PATIENT

DRUGS (2)
  1. CISPLATIN. [Suspect]
     Active Substance: CISPLATIN
     Indication: OESOPHAGEAL CARCINOMA
     Dosage: 40 MG/M2, DAILY (DAYS 2 THROUGH 3; TREATMENT WAS RECYCLED EVERY 21 DAYS)
  2. PACLITAXEL. [Suspect]
     Active Substance: PACLITAXEL
     Indication: OESOPHAGEAL CARCINOMA
     Dosage: 175 MG/M2, CYCLIC (BY 3-HOUR INFUSION DAY 1; TREATMENT WAS RECYCLED EVERY 21 DAYS)

REACTIONS (1)
  - Neutropenia [Fatal]
